FAERS Safety Report 11966780 (Version 2)
Quarter: 2016Q1

REPORT INFORMATION
  Report Type: Spontaneous
  Country: US (occurrence: US)
  Receive Date: 20160127
  Receipt Date: 20160316
  Transmission Date: 20160526
  Serious: Yes (Hospitalization)
  Sender: FDA-Public Use
  Company Number: US-B.I. PHARMACEUTICALS,INC./RIDGEFIELD-2016-BI-04400BP

PATIENT
  Age: 79 Year
  Sex: Male
  Weight: 57 kg

DRUGS (1)
  1. TRADJENTA [Suspect]
     Active Substance: LINAGLIPTIN
     Indication: DIABETES MELLITUS
     Dosage: 5 MG
     Route: 048
     Dates: start: 201509

REACTIONS (2)
  - Atrial fibrillation [Unknown]
  - Troponin increased [Unknown]

NARRATIVE: CASE EVENT DATE: 20160122
